FAERS Safety Report 4883126-8 (Version None)
Quarter: 2006Q1

REPORT INFORMATION
  Report Type: 
  Country: None (occurrence: None)
  Receive Date: 20060117
  Receipt Date: 20060117
  Transmission Date: 20060701
  Serious: Yes (Hospitalization)
  Sender: FDA-Public Use
  Company Number: None

PATIENT
  Sex: Male
  Weight: 101.4 kg

DRUGS (2)
  1. IBUPROFEN [Suspect]
     Dosage: PO
  2. ASPIRIN [Suspect]
     Dosage: PO

REACTIONS (5)
  - FAECES DISCOLOURED [None]
  - HAEMATEMESIS [None]
  - MELAENA [None]
  - NAUSEA [None]
  - VOMITING [None]
